FAERS Safety Report 7916742-7 (Version None)
Quarter: 2011Q4

REPORT INFORMATION
  Report Type: 
  Country: None (occurrence: None)
  Receive Date: 20111114
  Receipt Date: 20111107
  Transmission Date: 20120403
  Serious: Yes (Hospitalization, Disabling, Other)
  Sender: FDA-Public Use
  Company Number: 2010SP019254

PATIENT
  Age: 34 Year
  Sex: Female
  Weight: 67.586 kg

DRUGS (5)
  1. MULTI-VITAMIN [Concomitant]
  2. NUVARING [Suspect]
  3. ASPIRIN [Suspect]
     Indication: DEEP VEIN THROMBOSIS
  4. CLARITIN [Concomitant]
  5. NUVARING [Suspect]
     Indication: CONTRACEPTION
     Dosage: VAG
     Route: 067
     Dates: start: 20090310, end: 20090730

REACTIONS (63)
  - MUSCULOSKELETAL CHEST PAIN [None]
  - RASH [None]
  - CHRONIC FATIGUE SYNDROME [None]
  - PNEUMONIA [None]
  - VAGINAL INFECTION [None]
  - PELVIC PAIN [None]
  - TRICUSPID VALVE INCOMPETENCE [None]
  - THROMBOPHLEBITIS [None]
  - VISION BLURRED [None]
  - DEEP VEIN THROMBOSIS [None]
  - FATIGUE [None]
  - OVARIAN CYST [None]
  - VARICOSE VEIN [None]
  - RESTLESS LEGS SYNDROME [None]
  - BACK PAIN [None]
  - INTRACARDIAC THROMBUS [None]
  - PRESYNCOPE [None]
  - PNEUMONIA VIRAL [None]
  - MULTIPLE INJURIES [None]
  - AORTIC EMBOLUS [None]
  - GENERAL PHYSICAL CONDITION ABNORMAL [None]
  - EPSTEIN-BARR VIRUS INFECTION [None]
  - NODULE [None]
  - PAIN IN EXTREMITY [None]
  - CONSTIPATION [None]
  - ARTHRITIS [None]
  - HYPERSENSITIVITY [None]
  - SWELLING FACE [None]
  - DEPRESSION [None]
  - CYTOMEGALOVIRUS INFECTION [None]
  - ERYTHEMA NODOSUM [None]
  - OEDEMA [None]
  - ANAEMIA [None]
  - PAPILLOMA VIRAL INFECTION [None]
  - PHLEBITIS [None]
  - RHEUMATIC HEART DISEASE [None]
  - WEIGHT INCREASED [None]
  - PULMONARY EMBOLISM [None]
  - ANXIETY [None]
  - BRONCHITIS [None]
  - SLEEP APNOEA SYNDROME [None]
  - HAEMATEMESIS [None]
  - EYE SWELLING [None]
  - ARTHRALGIA [None]
  - WEIGHT DECREASED [None]
  - NAUSEA [None]
  - VOMITING [None]
  - MUSCLE SPASMS [None]
  - SUPRAVENTRICULAR EXTRASYSTOLES [None]
  - URINARY TRACT INFECTION [None]
  - ABDOMINAL PAIN [None]
  - SKIN PAPILLOMA [None]
  - ASTHENIA [None]
  - DIZZINESS [None]
  - VENTRICULAR EXTRASYSTOLES [None]
  - HEART RATE IRREGULAR [None]
  - SNORING [None]
  - HYPOKALAEMIA [None]
  - NOCTURIA [None]
  - FIBRIN D DIMER INCREASED [None]
  - MITRAL VALVE INCOMPETENCE [None]
  - NIGHT SWEATS [None]
  - INFLUENZA LIKE ILLNESS [None]
